FAERS Safety Report 25945423 (Version 2)
Quarter: 2025Q4

REPORT INFORMATION
  Report Type: Spontaneous
  Country: CN (occurrence: CN)
  Receive Date: 20251021
  Receipt Date: 20251104
  Transmission Date: 20260117
  Serious: Yes (Hospitalization, Other)
  Sender: NOVO NORDISK
  Company Number: CN-NOVOPROD-1540232

PATIENT
  Age: 46 Year
  Sex: Female

DRUGS (1)
  1. NOVOLIN R [Suspect]
     Active Substance: INSULIN HUMAN
     Indication: Type 1 diabetes mellitus
     Dosage: UNK (STARTED TO USE IN 2004 OR 2005)

REACTIONS (2)
  - Pyrexia [Recovering/Resolving]
  - Diabetes mellitus inadequate control [Recovering/Resolving]
